FAERS Safety Report 9307083 (Version 2)
Quarter: 2013Q2

REPORT INFORMATION
  Report Type: Spontaneous
  Country: GB (occurrence: GB)
  Receive Date: 20130523
  Receipt Date: 20130610
  Transmission Date: 20140414
  Serious: Yes (Disabling, Other)
  Sender: FDA-Public Use
  Company Number: GB-B.I. PHARMACEUTICALS,INC./RIDGEFIELD-2013-BI-14410YA

PATIENT
  Sex: Male

DRUGS (1)
  1. TAMSULOSINA [Suspect]
     Indication: PROSTATOMEGALY
     Dosage: 400 MCG
     Dates: start: 201206

REACTIONS (2)
  - Nasal congestion [Unknown]
  - Rhinitis [Unknown]
